FAERS Safety Report 10359070 (Version 2)
Quarter: 2020Q3

REPORT INFORMATION
  Report Type: Other
  Country: US (occurrence: US)
  Receive Date: 20140804
  Receipt Date: 20200928
  Transmission Date: 20201102
  Serious: Yes (Other)
  Sender: FDA-Public Use
  Company Number: US-ROCHE-1441176

PATIENT

DRUGS (1)
  1. BEVACIZUMAB. [Suspect]
     Active Substance: BEVACIZUMAB
     Indication: GLIOBLASTOMA
     Route: 065

REACTIONS (59)
  - Proteinuria [Unknown]
  - Ejection fraction decreased [Unknown]
  - Pulmonary haemorrhage [Unknown]
  - Seizure [Unknown]
  - Hemiparesis [Unknown]
  - Confusional state [Unknown]
  - Epistaxis [Unknown]
  - Oedema [Unknown]
  - Memory impairment [Unknown]
  - Depression [Unknown]
  - Diverticulitis [Unknown]
  - Haemorrhage intracranial [Unknown]
  - Anaemia [Unknown]
  - Diarrhoea [Unknown]
  - Hyponatraemia [Unknown]
  - Headache [Unknown]
  - Back pain [Unknown]
  - Embolism [Unknown]
  - Platelet count decreased [Unknown]
  - Neutrophil count decreased [Unknown]
  - Fall [Unknown]
  - Hyperglycaemia [Unknown]
  - Hypokalaemia [Unknown]
  - Hypoglycaemia [Unknown]
  - Cognitive disorder [Unknown]
  - Pain [Unknown]
  - Anxiety [Unknown]
  - Ischaemic stroke [Unknown]
  - Muscular weakness [Unknown]
  - Urinary tract infection [Unknown]
  - Paraesthesia [Unknown]
  - Cough [Unknown]
  - Hypertension [Unknown]
  - Fatigue [Unknown]
  - Gait disturbance [Unknown]
  - Urinary incontinence [Unknown]
  - Upper respiratory tract infection [Unknown]
  - Optic nerve disorder [Unknown]
  - Myocardial infarction [Unknown]
  - White blood cell count decreased [Unknown]
  - Alanine aminotransferase increased [Unknown]
  - Dysphagia [Unknown]
  - Blood alkaline phosphatase increased [Unknown]
  - Nausea [Unknown]
  - Vomiting [Unknown]
  - Hypocalcaemia [Unknown]
  - Tremor [Unknown]
  - Embolism venous [Unknown]
  - Colonic abscess [Unknown]
  - Aspartate aminotransferase increased [Unknown]
  - Ataxia [Unknown]
  - Dyspnoea [Unknown]
  - Decreased appetite [Unknown]
  - Dizziness [Unknown]
  - Intestinal perforation [Unknown]
  - Anal fistula [Unknown]
  - Aphasia [Unknown]
  - Constipation [Unknown]
  - Abdominal pain [Unknown]
